FAERS Safety Report 19271256 (Version 2)
Quarter: 2021Q2

REPORT INFORMATION
  Report Type: Report from Study
  Country: US (occurrence: US)
  Receive Date: 20210518
  Receipt Date: 20210520
  Transmission Date: 20210717
  Serious: Yes (Death)
  Sender: FDA-Public Use
  Company Number: US-PFIZER INC-2020451080

PATIENT

DRUGS (4)
  1. IRINOTECAN LIPOSOME INJECTION [Suspect]
     Active Substance: IRINOTECAN
     Indication: PANCREATIC CARCINOMA
     Dosage: 55 MG/M2, ON DAYS 1 AND 15 OF EACH 28?DAY CYCLE
     Route: 042
  2. LEUCOVORIN. [Suspect]
     Active Substance: LEUCOVORIN
     Indication: PANCREATIC CARCINOMA
     Dosage: 400 MG/M2, ON DAYS 1 AND 15 OF EACH 28?DAY CYCLE
     Route: 042
  3. 5?FU [Suspect]
     Active Substance: FLUOROURACIL
     Indication: PANCREATIC CARCINOMA
     Dosage: 2400 MG/M2, ON DAYS 1 AND 15 OF EACH 28?DAY CYCLE
     Route: 042
  4. OXALIPLATIN. [Suspect]
     Active Substance: OXALIPLATIN
     Indication: PANCREATIC CARCINOMA
     Dosage: 70 MG/M2, ON DAYS 1 AND 15 OF EACH 28?DAY CYCLE
     Route: 042

REACTIONS (1)
  - Colitis [Fatal]
